FAERS Safety Report 9271522 (Version 3)
Quarter: 2013Q2

REPORT INFORMATION
  Report Type: Spontaneous
  Country: US (occurrence: US)
  Receive Date: 20130506
  Receipt Date: 20130523
  Transmission Date: 20140414
  Serious: Yes (Other)
  Sender: FDA-Public Use
  Company Number: US-ROXANE LABORATORIES, INC.-2013-RO-00699RO

PATIENT
  Age: 39 Year
  Sex: Male
  Weight: 79 kg

DRUGS (6)
  1. FUROSEMIDE [Suspect]
     Indication: OEDEMA PERIPHERAL
     Route: 048
     Dates: start: 200811
  2. FUROSEMIDE [Suspect]
     Indication: HYPERTENSION
  3. FUROSEMIDE [Suspect]
     Indication: OEDEMA PERIPHERAL
     Route: 048
     Dates: start: 200811
  4. EPLERENONE [Suspect]
     Indication: HYPERTENSION
     Dosage: 25 MG
     Route: 048
     Dates: start: 2009
  5. POTASSIUM CHLORIDE [Suspect]
     Indication: HYPERTENSION
     Dosage: 40 MEQ
     Route: 048
  6. METOPROLOL [Concomitant]

REACTIONS (10)
  - Product quality issue [Recovered/Resolved]
  - Product tampering [Recovered/Resolved]
  - Cardiac failure congestive [Not Recovered/Not Resolved]
  - Urticaria [Not Recovered/Not Resolved]
  - Skin ulcer [Not Recovered/Not Resolved]
  - Joint swelling [Not Recovered/Not Resolved]
  - Pain [Not Recovered/Not Resolved]
  - Pruritus [Recovered/Resolved]
  - Skin swelling [Recovered/Resolved]
  - Dry skin [Recovered/Resolved]
